FAERS Safety Report 18628479 (Version 1)
Quarter: 2020Q4

REPORT INFORMATION
  Report Type: Report from Study
  Country: None (occurrence: US)
  Receive Date: 20201217
  Receipt Date: 20201217
  Transmission Date: 20210114
  Serious: Yes (Other)
  Sender: FDA-Public Use
  Company Number: US-ABBVIE-20K-163-3693426-00

PATIENT
  Sex: Male

DRUGS (1)
  1. HUMIRA [Suspect]
     Active Substance: ADALIMUMAB
     Indication: PSORIASIS
     Route: 058
     Dates: start: 20200305

REACTIONS (4)
  - Fatigue [Not Recovered/Not Resolved]
  - Cyst [Unknown]
  - Skin plaque [Unknown]
  - Skin irritation [Unknown]

NARRATIVE: CASE EVENT DATE: 2020
